FAERS Safety Report 5575178-7 (Version None)
Quarter: 2007Q4

REPORT INFORMATION
  Report Type: 
  Country: None (occurrence: None)
  Receive Date: 20071130
  Receipt Date: 20070806
  Transmission Date: 20080405
  Serious: No
  Sender: FDA-Public Use
  Company Number: US200708001339

PATIENT
  Age: 73 Year
  Sex: Female
  Weight: 81.6 kg

DRUGS (4)
  1. BYETTA [Suspect]
     Dosage: 5 UG, EACH MORNING, SUBCUTANEOUS ; 10 UG, EACH EVENING, SUBCUTANEOUS ; 5 UG, 2/D, SUBCUTANEOUS
     Route: 058
     Dates: start: 20060101
  2. BYETTA [Suspect]
     Dosage: 5 UG, EACH MORNING, SUBCUTANEOUS ; 10 UG, EACH EVENING, SUBCUTANEOUS ; 5 UG, 2/D, SUBCUTANEOUS
     Route: 058
     Dates: start: 20060101
  3. BYETTA [Suspect]
     Dosage: 5 UG, EACH MORNING, SUBCUTANEOUS ; 10 UG, EACH EVENING, SUBCUTANEOUS ; 5 UG, 2/D, SUBCUTANEOUS
     Route: 058
     Dates: start: 20060101
  4. BYETTA [Suspect]
     Dosage: 5 UG, EACH MORNING, SUBCUTANEOUS ; 10 UG, EACH EVENING, SUBCUTANEOUS ; 5 UG, 2/D, SUBCUTANEOUS
     Route: 058
     Dates: start: 20060601

REACTIONS (3)
  - BLOOD GLUCOSE INCREASED [None]
  - SWELLING FACE [None]
  - WEIGHT DECREASED [None]
